FAERS Safety Report 9227742 (Version 1)
Quarter: 2013Q2

REPORT INFORMATION
  Report Type: Spontaneous
  Country: US (occurrence: US)
  Receive Date: 20130412
  Receipt Date: 20130412
  Transmission Date: 20140414
  Serious: No
  Sender: FDA-Public Use
  Company Number: US-MYLANLABS-2012S1018323

PATIENT
  Age: 55 Year
  Sex: Female

DRUGS (1)
  1. DIVALPROEX SODIUM DELAYED-RELEASE TABLETS USP [Suspect]
     Indication: BIPOLAR DISORDER
     Dosage: TAKES THREE TABLETS THREE TIMES A DAY.
     Route: 048

REACTIONS (1)
  - Oedema peripheral [Not Recovered/Not Resolved]
